FAERS Safety Report 5776572-1 (Version None)
Quarter: 2008Q2

REPORT INFORMATION
  Report Type: 
  Country: None (occurrence: None)
  Receive Date: 20080616
  Receipt Date: 20080604
  Transmission Date: 20081010
  Serious: Yes (Life-Threatening, Hospitalization)
  Sender: FDA-Public Use
  Company Number: ADE2008-0213

PATIENT
  Age: 83 Year
  Sex: Female
  Weight: 65 kg

DRUGS (9)
  1. BISOPROLOL FUMARATE [Suspect]
     Dosage: 10MG,DAILY
     Dates: end: 20080414
  2. AMILORIDE HYDROCHLORIDE [Suspect]
     Indication: OEDEMA
     Dosage: 10MG,DAILY
     Dates: end: 20080414
  3. BUMETANIDE [Concomitant]
  4. GABAPENTIN [Concomitant]
  5. WARFARIN SODIUM [Concomitant]
  6. DIGOXIN [Suspect]
     Dosage: 62.5MG,DAILY
     Dates: end: 20080414
  7. RAMIPRIL [Suspect]
     Indication: CARDIAC FAILURE CONGESTIVE
     Dosage: 3.75MG,DAILY
     Dates: end: 20080414
  8. RAMIPRIL [Suspect]
     Indication: HYPERTENSION
     Dosage: 3.75MG,DAILY
     Dates: end: 20080414
  9. SPIRONOLACTONE [Suspect]
     Indication: OEDEMA
     Dosage: 25MG,DAILY
     Dates: start: 20080325, end: 20080414

REACTIONS (5)
  - ATRIOVENTRICULAR BLOCK COMPLETE [None]
  - BLOOD PRESSURE DECREASED [None]
  - FALL [None]
  - HAEMODIALYSIS [None]
  - RENAL FAILURE ACUTE [None]
